FAERS Safety Report 17138627 (Version 1)
Quarter: 2019Q4

REPORT INFORMATION
  Report Type: Spontaneous
  Country: US (occurrence: US)
  Receive Date: 20191120
  Receipt Date: 20191120
  Transmission Date: 20200122
  Serious: Yes (Hospitalization)
  Sender: FDA-Public Use
  Company Number: None

PATIENT
  Age: 61 Year
  Sex: Female
  Weight: 94.8 kg

DRUGS (4)
  1. CYCLOPHOSPHAMIDE (26271) [Suspect]
     Active Substance: CYCLOPHOSPHAMIDE
     Dates: end: 20191102
  2. CYTARABINE. [Suspect]
     Active Substance: CYTARABINE
     Dates: end: 20191112
  3. MERCAPTOPURINE. [Suspect]
     Active Substance: MERCAPTOPURINE
     Dates: end: 20191115
  4. METHOTREXATE. [Suspect]
     Active Substance: METHOTREXATE
     Dates: start: 20191112

REACTIONS (5)
  - Anaemia [None]
  - Chills [None]
  - Pancytopenia [None]
  - Febrile neutropenia [None]
  - Platelet count decreased [None]

NARRATIVE: CASE EVENT DATE: 20191116
